FAERS Safety Report 13348867 (Version 1)
Quarter: 2017Q1

REPORT INFORMATION
  Report Type: Spontaneous
  Country: PL (occurrence: PL)
  Receive Date: 20170320
  Receipt Date: 20170320
  Transmission Date: 20170428
  Serious: Yes (Life-Threatening)
  Sender: FDA-Public Use
  Company Number: PL-ORION CORPORATION ORION PHARMA-17_00002240

PATIENT
  Sex: Male

DRUGS (2)
  1. METHOTREXATE. [Suspect]
     Active Substance: METHOTREXATE
     Indication: FIBROMATOSIS
     Route: 065
     Dates: start: 201211, end: 201301
  2. VINBLASTINE [Suspect]
     Active Substance: VINBLASTINE
     Indication: FIBROMATOSIS
     Route: 065
     Dates: start: 201211, end: 201301

REACTIONS (2)
  - Fibromatosis [Recovered/Resolved]
  - Drug ineffective [Unknown]
